FAERS Safety Report 11372124 (Version 2)
Quarter: 2015Q4

REPORT INFORMATION
  Report Type: Spontaneous
  Country: CN (occurrence: CN)
  Receive Date: 20150812
  Receipt Date: 20151028
  Transmission Date: 20160304
  Serious: Yes (Hospitalization, Other)
  Sender: FDA-Public Use
  Company Number: CN-GILEAD-2015-0167324

PATIENT
  Age: 37 Year
  Sex: Female

DRUGS (1)
  1. HEPSERA [Suspect]
     Active Substance: ADEFOVIR DIPIVOXIL
     Indication: CHRONIC HEPATITIS B
     Dosage: 10 MG, QD
     Route: 065
     Dates: start: 2011, end: 201310

REACTIONS (4)
  - Osteomalacia [Recovering/Resolving]
  - Osteoporosis [Recovering/Resolving]
  - Fanconi syndrome acquired [Recovering/Resolving]
  - Hypophosphataemia [Recovering/Resolving]
